FAERS Safety Report 8265793-4 (Version None)
Quarter: 2012Q2

REPORT INFORMATION
  Report Type: 
  Country: None (occurrence: None)
  Receive Date: 20120406
  Receipt Date: 20120403
  Transmission Date: 20120825
  Serious: Yes (Other)
  Sender: FDA-Public Use
  Company Number: PHEH2009US02559

PATIENT
  Sex: Male

DRUGS (29)
  1. VELCADE [Concomitant]
  2. FENTANYL CITRATE [Concomitant]
  3. DIPHENHYDRAMINE HYDROCHLORIDE [Concomitant]
     Dosage: 25 MG, UNK
     Route: 048
     Dates: start: 20081210, end: 20090217
  4. THALIDOMIDE [Concomitant]
  5. CEPHALEXIN [Concomitant]
     Dosage: 500 MG, UNK
     Route: 048
     Dates: start: 20070910, end: 20070920
  6. INSULIN [Concomitant]
  7. FAMOTIDINE [Concomitant]
  8. REVLIMID [Concomitant]
     Dosage: 25 MG, UNK
     Dates: start: 20060417
  9. ACETAMINOPHEN [Concomitant]
     Dosage: 650 MG, UNK
  10. WARFARIN SODIUM [Concomitant]
     Dosage: 1 MG, UNK
     Route: 048
     Dates: start: 20080425, end: 20090217
  11. PROCRIT [Concomitant]
  12. PROMETHAZINE [Concomitant]
  13. MELPHALAN HYDROCHLORIDE [Concomitant]
     Dosage: 4 MG, UNK
     Route: 048
  14. DEMEROL [Concomitant]
     Dosage: 50 MG, UNK
  15. OXYCONTIN [Concomitant]
     Dosage: 20 MG, Q12H
     Route: 048
  16. TYLENOL [Concomitant]
     Dosage: 325 MG, UNK
     Route: 048
  17. DEXAMETHASONE [Concomitant]
  18. CYANOCOBALAMIN [Concomitant]
     Dosage: UNK
  19. BIAXIN [Concomitant]
  20. DECADRON [Concomitant]
  21. DIAZEPAM [Concomitant]
  22. ALKERAN [Concomitant]
  23. MORPHINE [Concomitant]
  24. MEPRON [Concomitant]
  25. AREDIA [Suspect]
     Dosage: UNK
     Dates: start: 19960604
  26. ZOMETA [Suspect]
     Dosage: UNK
     Dates: start: 20020206
  27. PROCHLORPERAZINE [Concomitant]
     Dosage: 10 MG, UNK
     Route: 048
  28. PAMIDRONATE DISODIUM [Concomitant]
     Dosage: 90 MG, UNK
  29. MORPHINE SULFATE [Concomitant]

REACTIONS (26)
  - OSTEOLYSIS [None]
  - PAIN [None]
  - PAIN IN JAW [None]
  - GINGIVAL SWELLING [None]
  - INFECTED DERMAL CYST [None]
  - EPISTAXIS [None]
  - VISION BLURRED [None]
  - LUNG DISORDER [None]
  - CYST [None]
  - DYSPHAGIA [None]
  - TOOTHACHE [None]
  - NEUROPATHY PERIPHERAL [None]
  - ANXIETY [None]
  - ANHEDONIA [None]
  - NASOPHARYNGITIS [None]
  - UPPER-AIRWAY COUGH SYNDROME [None]
  - RHINITIS ALLERGIC [None]
  - INJURY [None]
  - TOOTH DISORDER [None]
  - OSTEONECROSIS OF JAW [None]
  - STOMATITIS [None]
  - DYSPHONIA [None]
  - OSTEOPOROSIS [None]
  - SPINAL COMPRESSION FRACTURE [None]
  - DISABILITY [None]
  - MASTICATION DISORDER [None]
